FAERS Safety Report 21832033 (Version 1)
Quarter: 2023Q1

REPORT INFORMATION
  Report Type: Spontaneous
  Country: IT (occurrence: IT)
  Receive Date: 20230106
  Receipt Date: 20230106
  Transmission Date: 20230417
  Serious: Yes (Other)
  Sender: FDA-Public Use
  Company Number: None

PATIENT
  Age: 54 Year
  Sex: Female

DRUGS (1)
  1. INFLIXIMAB [Suspect]
     Active Substance: INFLIXIMAB
     Indication: Colitis ulcerative
     Route: 042
     Dates: start: 20220720, end: 20220906

REACTIONS (3)
  - Rectal haemorrhage [Not Recovered/Not Resolved]
  - Rash [Recovered/Resolved]
  - Anal erythema [Unknown]

NARRATIVE: CASE EVENT DATE: 20220930
